FAERS Safety Report 8542576-9 (Version None)
Quarter: 2012Q3

REPORT INFORMATION
  Report Type: 
  Country: None (occurrence: None)
  Receive Date: 20120726
  Receipt Date: 20120718
  Transmission Date: 20120928
  Serious: Yes (Other)
  Sender: FDA-Public Use
  Company Number: CA-GILEAD-2012-0058261

PATIENT
  Sex: Female

DRUGS (5)
  1. TADALAFIL [Concomitant]
  2. PLAQUENIL [Concomitant]
  3. AMBRISENTAN [Suspect]
     Indication: PULMONARY ARTERIAL HYPERTENSION
     Dosage: 5MG UNKNOWN
     Route: 048
     Dates: start: 20120626
  4. AZATHIOPRINE [Concomitant]
  5. DIDROCAL [Concomitant]

REACTIONS (5)
  - ORTHOPNOEA [None]
  - FACE OEDEMA [None]
  - DYSPNOEA [None]
  - SWELLING FACE [None]
  - OEDEMA PERIPHERAL [None]
